FAERS Safety Report 18843587 (Version 1)
Quarter: 2021Q1

REPORT INFORMATION
  Report Type: Report from Study
  Country: US (occurrence: US)
  Receive Date: 20210203
  Receipt Date: 20210203
  Transmission Date: 20210419
  Serious: No
  Sender: FDA-Public Use
  Company Number: US-EXELIXIS-CABO-20030325

PATIENT
  Age: 76 Year
  Sex: Female

DRUGS (3)
  1. CABOMETYX [Suspect]
     Active Substance: CABOZANTINIB S-MALATE
     Indication: RENAL CANCER
     Dosage: 60 MG, QD
     Dates: start: 20200503
  2. OXYCONTIN [Concomitant]
     Active Substance: OXYCODONE HYDROCHLORIDE
     Indication: ARTHRALGIA
     Dosage: UNK
  3. CABOMETYX [Suspect]
     Active Substance: CABOZANTINIB S-MALATE
     Dosage: 60 MG, QOD
     Dates: start: 20200622

REACTIONS (11)
  - Pain in extremity [Not Recovered/Not Resolved]
  - Inappropriate schedule of product administration [Unknown]
  - Fatigue [Not Recovered/Not Resolved]
  - Breast cancer [Not Recovered/Not Resolved]
  - Flatulence [Not Recovered/Not Resolved]
  - Gastrooesophageal reflux disease [Not Recovered/Not Resolved]
  - Diarrhoea [Not Recovered/Not Resolved]
  - Groin pain [Unknown]
  - Blister [Unknown]
  - Nausea [Not Recovered/Not Resolved]
  - Asthenia [Not Recovered/Not Resolved]

NARRATIVE: CASE EVENT DATE: 202006
